FAERS Safety Report 7076456-5 (Version None)
Quarter: 2010Q4

REPORT INFORMATION
  Report Type: 
  Country: None (occurrence: None)
  Receive Date: 20101029
  Receipt Date: 20101029
  Transmission Date: 20110411
  Serious: Yes (Hospitalization)
  Sender: FDA-Public Use
  Company Number: None

PATIENT
  Age: 82 Year
  Sex: Female
  Weight: 65.7716 kg

DRUGS (2)
  1. MULTAQ [Suspect]
     Indication: ATRIAL FIBRILLATION
     Dosage: 1 TABLET EVERY 12 HRS. BY MOUTH
     Route: 048
     Dates: start: 20100902
  2. MULTAQ [Suspect]
     Indication: ATRIAL FIBRILLATION
     Dosage: 1 TABLET EVERY 12 HRS. BY MOUTH
     Route: 048
     Dates: start: 20100907

REACTIONS (7)
  - DIARRHOEA [None]
  - INSOMNIA [None]
  - NAUSEA [None]
  - OEDEMA PERIPHERAL [None]
  - RHINORRHOEA [None]
  - VOMITING [None]
  - WHEEZING [None]
